FAERS Safety Report 13706139 (Version 1)
Quarter: 2017Q2

REPORT INFORMATION
  Report Type: Spontaneous
  Country: GB (occurrence: GB)
  Receive Date: 20170630
  Receipt Date: 20170630
  Transmission Date: 20170830
  Serious: Yes (Death, Other)
  Sender: FDA-Public Use
  Company Number: GB-TEVA-780687ACC

PATIENT
  Age: 11 Month
  Sex: Female
  Weight: 9.2 kg

DRUGS (2)
  1. PHENYTOIN. [Suspect]
     Active Substance: PHENYTOIN
     Indication: SEIZURE
     Dosage: 1000MG PHENYTOIN IN 20 ML OF UNDILUTED PREPARATION.INFUSION
     Dates: start: 20160616
  2. CEFTRIAXONE. [Concomitant]
     Active Substance: CEFTRIAXONE
     Dosage: INFUSION
     Route: 042
     Dates: start: 20160616

REACTIONS (8)
  - Generalised tonic-clonic seizure [Not Recovered/Not Resolved]
  - Irritability [Not Recovered/Not Resolved]
  - Cardiac arrest [Fatal]
  - Vomiting [Not Recovered/Not Resolved]
  - Overdose [Not Recovered/Not Resolved]
  - Cough [Not Recovered/Not Resolved]
  - Product preparation error [Unknown]
  - Somnolence [Not Recovered/Not Resolved]

NARRATIVE: CASE EVENT DATE: 20160616
